FAERS Safety Report 24258943 (Version 1)
Quarter: 2024Q3

REPORT INFORMATION
  Report Type: Spontaneous
  Country: ZA (occurrence: ZA)
  Receive Date: 20240828
  Receipt Date: 20240828
  Transmission Date: 20241017
  Serious: Yes (Hospitalization, Other)
  Sender: PFIZER
  Company Number: ZA-PFIZER INC-2018305404

PATIENT
  Age: 74 Year
  Sex: Female
  Weight: 80 kg

DRUGS (9)
  1. METHOTREXATE SODIUM [Suspect]
     Active Substance: METHOTREXATE SODIUM
     Dosage: 25 MG, WEEKLY
     Dates: start: 20080101
  2. SULFASALAZINE [Suspect]
     Active Substance: SULFASALAZINE
     Dosage: 1000 MG, 2X/DAY
     Dates: start: 20080101
  3. HYDROXYCHLOROQUINE [Suspect]
     Active Substance: HYDROXYCHLOROQUINE
     Dosage: 200 MG, DAILY
     Dates: start: 20080101
  4. HUMIRA [Concomitant]
     Active Substance: ADALIMUMAB
     Dosage: 40 MG
     Dates: start: 20100401
  5. ACTEMRA [Concomitant]
     Active Substance: TOCILIZUMAB
     Dosage: 680
     Dates: start: 20121201
  6. ACTEMRA [Concomitant]
     Active Substance: TOCILIZUMAB
     Dosage: 600
     Dates: start: 20131101
  7. ORENCIA [Concomitant]
     Active Substance: ABATACEPT
     Dosage: 750
     Dates: start: 20160701
  8. RITUXIMAB [Concomitant]
     Active Substance: RITUXIMAB
     Dosage: 1 G DAY 1 AND 15
     Dates: start: 202104, end: 202205
  9. RINVOQ [Concomitant]
     Active Substance: UPADACITINIB
     Dosage: 15 MG, DAILY
     Dates: start: 202210, end: 202310

REACTIONS (18)
  - Chest X-ray abnormal [Unknown]
  - Bronchial carcinoma [Unknown]
  - Drug ineffective [Unknown]
  - C-reactive protein increased [Not Recovered/Not Resolved]
  - Procalcitonin increased [Unknown]
  - Carbon dioxide increased [Unknown]
  - Blood creatinine increased [Unknown]
  - Glomerular filtration rate decreased [Not Recovered/Not Resolved]
  - Blood urea increased [Recovered/Resolved]
  - Blood cholesterol increased [Unknown]
  - Low density lipoprotein increased [Not Recovered/Not Resolved]
  - Haemoglobin decreased [Unknown]
  - Mean cell haemoglobin decreased [Unknown]
  - Investigation abnormal [Unknown]
  - Neutrophil count increased [Unknown]
  - Lymphocyte count decreased [Unknown]
  - Eosinophil count decreased [Unknown]
  - Platelet count increased [Unknown]

NARRATIVE: CASE EVENT DATE: 20180802
